FAERS Safety Report 18025103 (Version 1)
Quarter: 2020Q3

REPORT INFORMATION
  Report Type: Spontaneous
  Country: US (occurrence: US)
  Receive Date: 20200715
  Receipt Date: 20200715
  Transmission Date: 20201103
  Serious: No
  Sender: FDA-Public Use
  Company Number: US-PFIZER INC-2020269911

PATIENT

DRUGS (2)
  1. INDOMETHACIN. [Suspect]
     Active Substance: INDOMETHACIN
     Dosage: 200 MG, 1X/DAY (NIGHTLY )
  2. IBUPROFEN. [Suspect]
     Active Substance: IBUPROFEN
     Dosage: 25 MG, DAILY

REACTIONS (1)
  - Somnolence [Unknown]
